FAERS Safety Report 5363664-4 (Version None)
Quarter: 2007Q2

REPORT INFORMATION
  Report Type: 
  Country: None (occurrence: None)
  Receive Date: 20070618
  Receipt Date: 20070618
  Transmission Date: 20071010
  Serious: Yes (Hospitalization)
  Sender: FDA-Public Use
  Company Number: None

PATIENT
  Age: 34 Year
  Sex: Female
  Weight: 52.1637 kg

DRUGS (1)
  1. ZELNORM [Suspect]
     Indication: IRRITABLE BOWEL SYNDROME
     Dosage: 6MG  2 TIMES PER DAY  PO
     Route: 048
     Dates: start: 20040104, end: 20070601

REACTIONS (4)
  - CARDIAC VALVE DISEASE [None]
  - CHEST CRUSHING [None]
  - CHEST PAIN [None]
  - OBSTRUCTION [None]
